FAERS Safety Report 23951959 (Version 1)
Quarter: 2024Q2

REPORT INFORMATION
  Report Type: Spontaneous
  Country: GB (occurrence: GB)
  Receive Date: 20240607
  Receipt Date: 20240607
  Transmission Date: 20240715
  Serious: Yes (Other)
  Sender: FDA-Public Use
  Company Number: GB-TETRAPHASE PHARMACEUTICALS, INC-2024-INNO-GB000037

PATIENT

DRUGS (1)
  1. XERAVA [Suspect]
     Active Substance: ERAVACYCLINE DIHYDROCHLORIDE
     Indication: Bacteraemia
     Route: 042

REACTIONS (6)
  - Hepatic steatosis [Recovered/Resolved]
  - Hepatic failure [Recovered/Resolved]
  - Hepatic encephalopathy [Recovered/Resolved]
  - Coagulopathy [Recovered/Resolved]
  - Prothrombin time prolonged [Recovered/Resolved]
  - Transaminases increased [Recovered/Resolved]
